FAERS Safety Report 21920504 (Version 2)
Quarter: 2023Q1

REPORT INFORMATION
  Report Type: Spontaneous
  Country: GB (occurrence: GB)
  Receive Date: 20230127
  Receipt Date: 20230216
  Transmission Date: 20230417
  Serious: Yes (Hospitalization, Other)
  Sender: FDA-Public Use
  Company Number: GB-MYLANLABS-2022M1139513

PATIENT
  Age: 64 Year
  Sex: Female

DRUGS (3)
  1. CLOZARIL [Suspect]
     Active Substance: CLOZAPINE
     Indication: Product used for unknown indication
     Dosage: UNK
     Route: 048
     Dates: start: 20221014
  2. CLOZARIL [Suspect]
     Active Substance: CLOZAPINE
     Dosage: 300 MILLIGRAM, QD (BEFORE ADMISSION: 50MG MORNING, 250MG EVENING)
     Route: 065
  3. CLOZARIL [Suspect]
     Active Substance: CLOZAPINE
     Dosage: 87.5 MILLIGRAM, QD (AFTER ADMISSION: 37.5MG MORNING, 50MG EVENING)
     Route: 065

REACTIONS (7)
  - General physical health deterioration [Unknown]
  - Sepsis [Unknown]
  - Platelet count increased [Unknown]
  - Pneumonia [Unknown]
  - White blood cell count increased [Unknown]
  - Neutrophil count increased [Unknown]
  - Infection [Unknown]

NARRATIVE: CASE EVENT DATE: 20221213
